FAERS Safety Report 8073826-3 (Version None)
Quarter: 2012Q1

REPORT INFORMATION
  Report Type: 
  Country: None (occurrence: None)
  Receive Date: 20120126
  Receipt Date: 20120117
  Transmission Date: 20120608
  Serious: Yes (Death, Hospitalization, Other)
  Sender: FDA-Public Use
  Company Number: JP-ROCHE-1032224

PATIENT
  Sex: Female

DRUGS (13)
  1. MYCOPHENOLATE MOFETIL (CELLCEPT) [Suspect]
     Indication: PROPHYLAXIS AGAINST TRANSPLANT REJECTION
     Route: 048
     Dates: start: 20060615, end: 20060616
  2. SOLU-MEDROL [Concomitant]
     Indication: PROPHYLAXIS AGAINST TRANSPLANT REJECTION
     Route: 042
     Dates: start: 20060616, end: 20060616
  3. KAYTWO [Concomitant]
     Indication: PROPHYLAXIS
     Route: 042
     Dates: start: 20060615, end: 20060617
  4. LUGOL CAP [Concomitant]
     Indication: PROPHYLAXIS
     Route: 061
     Dates: start: 20060615
  5. SULPERAZONE [Concomitant]
     Indication: PROPHYLAXIS
     Route: 042
     Dates: start: 20060615, end: 20060624
  6. VANCOMYCIN [Concomitant]
     Indication: PROPHYLAXIS
     Dosage: DOSAGE IS UNCERTAIN.
     Route: 042
     Dates: start: 20060614, end: 20060615
  7. GANCICLOVIR [Concomitant]
     Indication: PROPHYLAXIS
     Dosage: 170-600MG/DAY
     Route: 042
     Dates: start: 20060614, end: 20060628
  8. OMEPRAZOLE [Concomitant]
     Indication: PROPHYLAXIS
     Route: 042
     Dates: start: 20060615
  9. PREDNISOLONE [Concomitant]
     Indication: PROPHYLAXIS AGAINST TRANSPLANT REJECTION
     Dosage: 2.5-200MG/DAY
     Route: 048
     Dates: start: 20060616, end: 20060916
  10. VANCOMYCIN [Concomitant]
     Dosage: DOSAGE IS UNCERTAIN.
     Route: 042
     Dates: start: 20060617, end: 20060617
  11. CLINDAMYCIN HCL [Concomitant]
     Indication: PROPHYLAXIS
     Route: 042
     Dates: start: 20060615, end: 20060624
  12. VANCOMYCIN [Concomitant]
     Dosage: DOSAGE IS UNCERTAIN.
     Route: 042
     Dates: start: 20060619, end: 20060619
  13. CYCLOSPORINE [Suspect]
     Indication: PROPHYLAXIS AGAINST TRANSPLANT REJECTION
     Dosage: 25-100MG/DAY
     Route: 048
     Dates: start: 20060616, end: 20060916

REACTIONS (3)
  - HEPATIC FAILURE [None]
  - BACTERAEMIA [None]
  - RENAL DISORDER [None]
